FAERS Safety Report 7675592-X (Version None)
Quarter: 2011Q3

REPORT INFORMATION
  Report Type: 
  Country: None (occurrence: None)
  Receive Date: 20110810
  Receipt Date: 20100304
  Transmission Date: 20111222
  Serious: Yes (Other)
  Sender: FDA-Public Use
  Company Number: US-BAYER-201010206NA

PATIENT
  Sex: Female
  Weight: 64.853 kg

DRUGS (12)
  1. OPTIMARK [Suspect]
     Indication: NUCLEAR MAGNETIC RESONANCE IMAGING
  2. OMNISCAN [Suspect]
     Indication: ANGIOGRAM
     Dates: start: 20030604, end: 20030604
  3. OPTIMARK [Suspect]
     Indication: ANGIOGRAM
  4. MAGNEVIST [Suspect]
     Indication: ANGIOGRAM
     Dosage: UNK
  5. MULTIHANCE [Suspect]
     Indication: ANGIOGRAM
  6. MAGNEVIST [Suspect]
     Indication: NUCLEAR MAGNETIC RESONANCE IMAGING
  7. OMNISCAN [Suspect]
     Indication: NUCLEAR MAGNETIC RESONANCE IMAGING
     Dates: start: 20040920, end: 20040920
  8. OMNISCAN [Suspect]
     Dosage: 5 ML, ONCE
     Dates: start: 20050222, end: 20050222
  9. PROHANCE [Suspect]
     Indication: ANGIOGRAM
  10. PROHANCE [Suspect]
     Indication: NUCLEAR MAGNETIC RESONANCE IMAGING
  11. OMNISCAN [Suspect]
     Dates: start: 20050124, end: 20050124
  12. MULTIHANCE [Suspect]
     Indication: NUCLEAR MAGNETIC RESONANCE IMAGING

REACTIONS (15)
  - ANHEDONIA [None]
  - JOINT RANGE OF MOTION DECREASED [None]
  - STRESS [None]
  - MUSCULAR WEAKNESS [None]
  - NEPHROGENIC SYSTEMIC FIBROSIS [None]
  - PAIN [None]
  - SKIN DISORDER [None]
  - SKIN INDURATION [None]
  - SKIN SWELLING [None]
  - ANXIETY [None]
  - ARTHRALGIA [None]
  - SKIN TIGHTNESS [None]
  - SKIN DISCOLOURATION [None]
  - SKIN BURNING SENSATION [None]
  - PRURITUS [None]
